FAERS Safety Report 5254427-9 (Version None)
Quarter: 2007Q1

REPORT INFORMATION
  Report Type: 
  Country: None (occurrence: None)
  Receive Date: 20070302
  Receipt Date: 20070223
  Transmission Date: 20070707
  Serious: Yes (Hospitalization, Other)
  Sender: FDA-Public Use
  Company Number: US-SHR-US-2007-001808

PATIENT
  Age: 37 Year
  Sex: Female
  Weight: 64 kg

DRUGS (2)
  1. MIRENA [Suspect]
     Indication: CONTRACEPTION
     Dosage: 20 A?G, CONT
     Route: 015
     Dates: start: 20050701, end: 20061202
  2. TORADOL [Suspect]
     Dates: start: 20061201, end: 20061201

REACTIONS (5)
  - FUNGAL INFECTION [None]
  - OVARIAN CYST [None]
  - PELVIC INFECTION [None]
  - PERITONITIS [None]
  - PLATELET COUNT DECREASED [None]
